FAERS Safety Report 10693654 (Version 3)
Quarter: 2015Q1

REPORT INFORMATION
  Report Type: Report from Study
  Country: US (occurrence: US)
  Receive Date: 20150106
  Receipt Date: 20150312
  Transmission Date: 20150721
  Serious: Yes (Other)
  Sender: FDA-Public Use
  Company Number: US-SA-2015SA000194

PATIENT
  Age: 59 Year
  Sex: Male
  Weight: 95.24 kg

DRUGS (5)
  1. FLUOXETINE [Concomitant]
     Active Substance: FLUOXETINE\FLUOXETINE HYDROCHLORIDE
     Indication: DEPRESSION
  2. LEVETIRACETAM. [Concomitant]
     Active Substance: LEVETIRACETAM
     Indication: HEADACHE
  3. VENLAFAXINE [Concomitant]
     Active Substance: VENLAFAXINE HYDROCHLORIDE
  4. GABAPENTIN. [Concomitant]
     Active Substance: GABAPENTIN
     Indication: PAIN
  5. AUBAGIO [Suspect]
     Active Substance: TERIFLUNOMIDE
     Indication: RELAPSING-REMITTING MULTIPLE SCLEROSIS
     Route: 048
     Dates: start: 20141219

REACTIONS (7)
  - Blood blister [Not Recovered/Not Resolved]
  - Hemiparesis [Unknown]
  - Insomnia [Unknown]
  - Fatigue [Unknown]
  - Therapeutic response unexpected [Unknown]
  - Fatigue [Unknown]
  - Blister [Unknown]

NARRATIVE: CASE EVENT DATE: 201412
